FAERS Safety Report 25788791 (Version 1)
Quarter: 2025Q3

REPORT INFORMATION
  Report Type: Spontaneous
  Country: US (occurrence: US)
  Receive Date: 20250911
  Receipt Date: 20250911
  Transmission Date: 20251020
  Serious: Yes (Other)
  Sender: BRISTOL-MYERS SQUIBB COMPANY
  Company Number: US-BRISTOL-MYERS SQUIBB COMPANY-2025-123206

PATIENT
  Age: 59 Year
  Sex: Female
  Weight: 102.06 kg

DRUGS (6)
  1. COBENFY [Suspect]
     Active Substance: TROSPIUM CHLORIDE\XANOMELINE
     Indication: Schizophrenia
     Dosage: DOSE AND STRENGTH: 125MG/30MG CAPSULES TWICE DAILY
     Dates: start: 20250723
  2. CLOTRIMAZOLE [Concomitant]
     Active Substance: CLOTRIMAZOLE
     Indication: Product used for unknown indication
  3. MIRTAZAPINE [Concomitant]
     Active Substance: MIRTAZAPINE
     Indication: Product used for unknown indication
  4. RISPERIDONE [Concomitant]
     Active Substance: RISPERIDONE
     Indication: Product used for unknown indication
     Dosage: TITRATED DOWN ONCE STARTED COBENFY AND DISCONTINUED
  5. SEROQUEL [Concomitant]
     Active Substance: QUETIAPINE FUMARATE
     Indication: Product used for unknown indication
     Dosage: TITRATED DOWN ONCE STARTED COBENFY AND DISCONTINUED
  6. TRAZODONE [Concomitant]
     Active Substance: TRAZODONE HYDROCHLORIDE
     Indication: Product used for unknown indication

REACTIONS (3)
  - Hallucination, auditory [Unknown]
  - Rash [Unknown]
  - Product packaging difficult to open [Unknown]
